FAERS Safety Report 13507378 (Version 1)
Quarter: 2017Q2

REPORT INFORMATION
  Report Type: Spontaneous
  Country: US (occurrence: US)
  Receive Date: 20170502
  Receipt Date: 20170502
  Transmission Date: 20170830
  Serious: Yes (Hospitalization)
  Sender: FDA-Public Use
  Company Number: None

PATIENT
  Age: 80 Year
  Sex: Male
  Weight: 87.4 kg

DRUGS (1)
  1. ESBRIET [Suspect]
     Active Substance: PIRFENIDONE
     Indication: PULMONARY FIBROSIS
     Dosage: 801 MG (3 CAPSULES) 3 TIMES DAILY ORAL
     Route: 048
     Dates: start: 201701

REACTIONS (2)
  - Escherichia test positive [None]
  - Bacterial sepsis [None]

NARRATIVE: CASE EVENT DATE: 20170422
